FAERS Safety Report 15514681 (Version 2)
Quarter: 2019Q1

REPORT INFORMATION
  Report Type: Report from Study
  Country: JP (occurrence: JP)
  Receive Date: 20181016
  Receipt Date: 20190204
  Transmission Date: 20190417
  Serious: Yes (Hospitalization, Other)
  Sender: FDA-Public Use
  Company Number: JP-AMGEN-JPNNI2018144912

PATIENT
  Age: 75 Year
  Sex: Male
  Weight: 76 kg

DRUGS (7)
  1. DEXAMETHASONE. [Concomitant]
     Active Substance: DEXAMETHASONE
     Dosage: 04/04/2018, 18/04/2018, 19/04/2018, 25/04/2018, 26/04/2018, 01/05/2018, 02/05/2018, 09/05/2018, 10/0
     Route: 065
     Dates: end: 20180510
  2. CARFILZOMIB [Suspect]
     Active Substance: CARFILZOMIB
     Dosage: 21/02/2018, 22/02/2018, 07/03/2018, 08/03/2018, 14/03/2018, 15/03/2018, 21/03/2018, 22/03/2018, 18/0
     Route: 041
     Dates: end: 20180502
  3. CARFILZOMIB [Suspect]
     Active Substance: CARFILZOMIB
     Dosage: 20/12/2017, 21/12/2017, 27/12/2017, 28/12/2017, 10/01/2018, 11/01/2018, 17/01/2018, 18/01/2018, 24/0
     Route: 041
  4. ZOVIRAX [Concomitant]
     Active Substance: ACYCLOVIR
     Indication: ANTIVIRAL PROPHYLAXIS
     Dosage: UNK
     Route: 048
     Dates: start: 20171108
  5. DEXAMETHASONE. [Concomitant]
     Active Substance: DEXAMETHASONE
     Indication: PLASMA CELL MYELOMA
     Dosage: 08/11/2017, 09/11/2017, 15/11/2017, 16/11/2017, 29/11/2017, 30/11/2017, 13/12/2017, 14/12/2017, 20/1
     Route: 065
     Dates: start: 20171108
  6. CARFILZOMIB [Suspect]
     Active Substance: CARFILZOMIB
     Indication: PLASMA CELL MYELOMA
     Dosage: 20MG/M2/DAY (08/11/2017, 09/11/2017) 56MG/M2/DAY (15/11/2017, 16/11/2017, 29/11/2017, 30/11/2017, 13
     Route: 041
     Dates: start: 20171108
  7. DEXAMETHASONE. [Concomitant]
     Active Substance: DEXAMETHASONE
     Dosage: 24/01/2018, 25/01/2018, 07/02/2018, 08/02/2018, 14/02/2018, 15/02/2018, 21/02/2018, 22/02/2018, 28/0
     Route: 065

REACTIONS (2)
  - Osteomyelitis [Recovered/Resolved]
  - Tumour lysis syndrome [Recovered/Resolved]

NARRATIVE: CASE EVENT DATE: 20171116
